FAERS Safety Report 7952360-2 (Version None)
Quarter: 2011Q4

REPORT INFORMATION
  Report Type: 
  Country: None (occurrence: None)
  Receive Date: 20111201
  Receipt Date: 20111128
  Transmission Date: 20120403
  Serious: Yes (Hospitalization)
  Sender: FDA-Public Use
  Company Number: US-MERCK-1111USA03761

PATIENT
  Sex: Female

DRUGS (2)
  1. RECLAST [Suspect]
     Route: 065
     Dates: start: 20090101
  2. FOSAMAX [Suspect]
     Route: 048
     Dates: start: 19970401, end: 20090101

REACTIONS (5)
  - SPINAL COMPRESSION FRACTURE [None]
  - FRACTURE NONUNION [None]
  - RIB FRACTURE [None]
  - FOOT FRACTURE [None]
  - FEMUR FRACTURE [None]
